FAERS Safety Report 7729266-7 (Version None)
Quarter: 2011Q3

REPORT INFORMATION
  Report Type: 
  Country: None (occurrence: None)
  Receive Date: 20110906
  Receipt Date: 20110902
  Transmission Date: 20111222
  Serious: No
  Sender: FDA-Public Use
  Company Number: US-PFIZER INC-2011206111

PATIENT
  Sex: Male
  Weight: 58.957 kg

DRUGS (3)
  1. ADVIL COLD AND SINUS [Suspect]
     Indication: COUGH
  2. ADVIL COLD AND SINUS [Suspect]
     Indication: RHINORRHOEA
  3. ADVIL COLD AND SINUS [Suspect]
     Indication: NASAL CONGESTION
     Dosage: EVERY SIX HOURS
     Dates: start: 20110825, end: 20110801

REACTIONS (1)
  - DRUG INEFFECTIVE [None]
